FAERS Safety Report 16818001 (Version 1)
Quarter: 2019Q3

REPORT INFORMATION
  Report Type: Spontaneous
  Country: NL (occurrence: DK)
  Receive Date: 20190917
  Receipt Date: 20190917
  Transmission Date: 20191005
  Serious: Yes (Other)
  Sender: FDA-Public Use
  Company Number: DK-FRESENIUS KABI-FK201910068

PATIENT
  Age: 60 Year
  Sex: Male

DRUGS (3)
  1. LINEZOLID 2 MG/ML [Suspect]
     Active Substance: LINEZOLID
     Indication: NOCARDIOSIS
     Route: 042
     Dates: start: 20171223, end: 20180423
  2. AMIODARONE HYDROCHLORIDE. [Concomitant]
     Active Substance: AMIODARONE HYDROCHLORIDE
     Indication: ARRHYTHMIA
     Route: 048
     Dates: start: 20171101, end: 20180608
  3. MEROPENEM TRIHYDRATE [Suspect]
     Active Substance: MEROPENEM
     Indication: NOCARDIOSIS
     Route: 042
     Dates: start: 20171223, end: 20180423

REACTIONS (6)
  - Nervous system disorder [Unknown]
  - Nausea [Unknown]
  - Rash [Unknown]
  - White blood cell count increased [Unknown]
  - Renal impairment [Unknown]
  - Polyneuropathy [Not Recovered/Not Resolved]

NARRATIVE: CASE EVENT DATE: 2018
